FAERS Safety Report 20916566 (Version 1)
Quarter: 2022Q2

REPORT INFORMATION
  Report Type: Spontaneous
  Country: US (occurrence: US)
  Receive Date: 20220605
  Receipt Date: 20220605
  Transmission Date: 20220721
  Serious: Yes (Death, Hospitalization)
  Sender: FDA-Public Use
  Company Number: US-BRISTOL-MYERS SQUIBB COMPANY-2022-052212

PATIENT
  Age: 77 Year
  Sex: Female
  Weight: 56.7 kg

DRUGS (3)
  1. OPDIVO [Suspect]
     Active Substance: NIVOLUMAB
     Indication: Lung neoplasm malignant
     Dosage: DOSE : NON AVAILABLE;     FREQ : EVERY 2 WEEKS
     Route: 065
     Dates: start: 2021, end: 20211124
  2. YERVOY [Suspect]
     Active Substance: IPILIMUMAB
     Indication: Lung neoplasm malignant
     Route: 042
     Dates: start: 2021, end: 20211124
  3. MORPHINE [Concomitant]
     Active Substance: MORPHINE
     Indication: Pain

REACTIONS (2)
  - Dyspnoea [Fatal]
  - Weight decreased [Unknown]
